FAERS Safety Report 8111919-2 (Version None)
Quarter: 2012Q1

REPORT INFORMATION
  Report Type: 
  Country: None (occurrence: None)
  Receive Date: 20120203
  Receipt Date: 20110421
  Transmission Date: 20120608
  Serious: Yes (Other)
  Sender: FDA-Public Use
  Company Number: US-GLAXOSMITHKLINE-A0924012A

PATIENT
  Age: 45 Year
  Sex: Male

DRUGS (3)
  1. ANTIBIOTIC [Concomitant]
  2. PERCOCET [Concomitant]
  3. ARIXTRA [Suspect]
     Indication: ANTICOAGULANT THERAPY
     Dosage: 2.5MG PER DAY
     Route: 058
     Dates: start: 20110419

REACTIONS (1)
  - URETHRAL HAEMORRHAGE [None]
